FAERS Safety Report 5265129-7 (Version None)
Quarter: 2007Q1

REPORT INFORMATION
  Report Type: 
  Country: None (occurrence: None)
  Receive Date: 20061121
  Receipt Date: 20061011
  Transmission Date: 20070707
  Serious: No
  Sender: FDA-Public Use
  Company Number: TPA2006A01788

PATIENT
  Age: 55 Year
  Sex: Male
  Weight: 88.4514 kg

DRUGS (5)
  1. ROZEREM [Suspect]
     Indication: INSOMNIA
     Dosage: 8 MG, HS,  PER ORAL
     Route: 048
     Dates: start: 20060911, end: 20060926
  2. PLAVIX [Concomitant]
  3. COREG [Concomitant]
  4. ALTACE [Concomitant]
  5. ZOCOR [Concomitant]

REACTIONS (1)
  - MIDDLE INSOMNIA [None]
